FAERS Safety Report 13595222 (Version 1)
Quarter: 2017Q2

REPORT INFORMATION
  Report Type: Spontaneous
  Country: GR (occurrence: GR)
  Receive Date: 20170531
  Receipt Date: 20170531
  Transmission Date: 20170830
  Serious: Yes (Other)
  Sender: FDA-Public Use
  Company Number: GR-TAKEDA-2017TUS011376

PATIENT
  Age: 52 Year
  Sex: Female

DRUGS (4)
  1. MESALAZINE [Concomitant]
     Active Substance: MESALAMINE
     Dosage: 2 G, QD
  2. ENTYVIO [Suspect]
     Active Substance: VEDOLIZUMAB
     Indication: COLITIS ULCERATIVE
     Dosage: 300 MG, UNK
     Route: 042
     Dates: start: 20170510
  3. PREZOLON [Concomitant]
     Active Substance: PREDNISOLONE
     Dosage: 20 MG, QD
  4. CALCIORAL D3 [Concomitant]
     Dosage: UNK

REACTIONS (4)
  - Agnosia [Unknown]
  - Fine motor skill dysfunction [Unknown]
  - Decreased vibratory sense [Unknown]
  - Paraesthesia [Unknown]

NARRATIVE: CASE EVENT DATE: 20170514
